FAERS Safety Report 5643577-0 (Version None)
Quarter: 2008Q1

REPORT INFORMATION
  Report Type: 
  Country: None (occurrence: None)
  Receive Date: 20080131
  Receipt Date: 20071217
  Transmission Date: 20080703
  Serious: Yes (Disabling, Other)
  Sender: FDA-Public Use
  Company Number: 163-21880-07120991

PATIENT
  Age: 64 Year
  Sex: Male

DRUGS (6)
  1. REVLIMID [Suspect]
     Indication: MULTIPLE MYELOMA
     Dosage: 15 MG, DAILY 21/28D, ORAL
     Route: 048
     Dates: start: 20071217
  2. DEXAMETHASONE [Concomitant]
  3. AREDIA [Concomitant]
  4. MORPHINE SULFATE [Concomitant]
  5. VICODIN [Concomitant]
  6. ATENOLOL [Concomitant]

REACTIONS (1)
  - MUSCLE SPASMS [None]
